FAERS Safety Report 8274056-2 (Version None)
Quarter: 2012Q2

REPORT INFORMATION
  Report Type: 
  Country: None (occurrence: None)
  Receive Date: 20120409
  Receipt Date: 20120327
  Transmission Date: 20120825
  Serious: Yes (Hospitalization, Disabling)
  Sender: FDA-Public Use
  Company Number: JPI-P-016015

PATIENT
  Age: 79 Year
  Sex: Male

DRUGS (18)
  1. TESTOSTERONE [Concomitant]
  2. POLYETHYLENE [Concomitant]
  3. SULINDAC [Concomitant]
  4. ASPIRIN [Concomitant]
  5. FEXOFENADINE [Concomitant]
  6. POLYETHYLENE GLYCOL 3350-OTC [Concomitant]
  7. XYREM [Suspect]
     Indication: NARCOLEPSY
     Dosage: 8 GM (4 GM, 2 IN 1 D), ORAL   5.5 GM (2.75 GM, 2 IN 1 D), ORAL
     Route: 048
     Dates: start: 20120126, end: 20120101
  8. XYREM [Suspect]
     Indication: SLEEP APNOEA SYNDROME
     Dosage: 8 GM (4 GM, 2 IN 1 D), ORAL   5.5 GM (2.75 GM, 2 IN 1 D), ORAL
     Route: 048
     Dates: start: 20120126, end: 20120101
  9. XYREM [Suspect]
     Indication: SOMNOLENCE
     Dosage: 8 GM (4 GM, 2 IN 1 D), ORAL   5.5 GM (2.75 GM, 2 IN 1 D), ORAL
     Route: 048
     Dates: start: 20120126, end: 20120101
  10. XYREM [Suspect]
     Indication: NARCOLEPSY
     Dosage: 8 GM (4 GM, 2 IN 1 D), ORAL   5.5 GM (2.75 GM, 2 IN 1 D), ORAL
     Route: 048
     Dates: start: 20090212, end: 20110712
  11. XYREM [Suspect]
     Indication: SLEEP APNOEA SYNDROME
     Dosage: 8 GM (4 GM, 2 IN 1 D), ORAL   5.5 GM (2.75 GM, 2 IN 1 D), ORAL
     Route: 048
     Dates: start: 20090212, end: 20110712
  12. XYREM [Suspect]
     Indication: SOMNOLENCE
     Dosage: 8 GM (4 GM, 2 IN 1 D), ORAL   5.5 GM (2.75 GM, 2 IN 1 D), ORAL
     Route: 048
     Dates: start: 20090212, end: 20110712
  13. XYREM [Suspect]
     Indication: NARCOLEPSY
     Dosage: 8 GM (4 GM, 2 IN 1 D), ORAL   5.5 GM (2.75 GM, 2 IN 1 D), ORAL
     Route: 048
     Dates: start: 20110713, end: 20120113
  14. XYREM [Suspect]
     Indication: SLEEP APNOEA SYNDROME
     Dosage: 8 GM (4 GM, 2 IN 1 D), ORAL   5.5 GM (2.75 GM, 2 IN 1 D), ORAL
     Route: 048
     Dates: start: 20110713, end: 20120113
  15. XYREM [Suspect]
     Indication: SOMNOLENCE
     Dosage: 8 GM (4 GM, 2 IN 1 D), ORAL   5.5 GM (2.75 GM, 2 IN 1 D), ORAL
     Route: 048
     Dates: start: 20110713, end: 20120113
  16. TRAMADOL HCL [Concomitant]
  17. OMEPRAZOLE [Concomitant]
  18. GABAPENTIN [Concomitant]

REACTIONS (12)
  - SCOLIOSIS [None]
  - SPINAL FUSION SURGERY [None]
  - WOUND DEHISCENCE [None]
  - SEPSIS [None]
  - GASTROINTESTINAL PAIN [None]
  - EYELID OEDEMA [None]
  - SPINAL LAMINECTOMY [None]
  - THROMBOSIS [None]
  - SPONDYLOLISTHESIS [None]
  - PULMONARY THROMBOSIS [None]
  - ARTHRITIS [None]
  - ATRIAL FIBRILLATION [None]
